FAERS Safety Report 11826024 (Version 1)
Quarter: 2015Q4

REPORT INFORMATION
  Report Type: Spontaneous
  Country: US (occurrence: US)
  Receive Date: 20151211
  Receipt Date: 20151211
  Transmission Date: 20160305
  Serious: Yes (Hospitalization)
  Sender: FDA-Public Use
  Company Number: US-ROCHE-1675856

PATIENT
  Sex: Female
  Weight: 34.5 kg

DRUGS (1)
  1. ESBRIET [Suspect]
     Active Substance: PIRFENIDONE
     Indication: IDIOPATHIC PULMONARY FIBROSIS
     Dosage: TOTAL: 2403 MG DAILY; 3 CAPS TID
     Route: 048
     Dates: start: 20150706

REACTIONS (1)
  - Kidney infection [Unknown]
